FAERS Safety Report 6934593 (Version 2)
Quarter: 2013Q1

REPORT INFORMATION
  Report Type: Spontaneous
  Country: RU (occurrence: RU)
  Receive Date: 20090311
  Receipt Date: 20130329
  Transmission Date: 20140127
  Serious: Yes (Death)
  Sender: FDA-Public Use
  Company Number: RU-MERCK-0902RUS00002

PATIENT
  Age: 23 Year
  Sex: Male

DRUGS (3)
  1. CANCIDAS [Suspect]
     Indication: RENAL TRANSPLANT
     Dosage: 50 MG, QD
     Route: 042
  2. CANCIDAS [Suspect]
     Dosage: 70 MG, QD
     Route: 042
  3. TIENAM IV [Concomitant]
     Indication: RENAL TRANSPLANT

REACTIONS (2)
  - Pulmonary haemorrhage [Fatal]
  - Drug ineffective [Fatal]
